FAERS Safety Report 23533703 (Version 1)
Quarter: 2024Q1

REPORT INFORMATION
  Report Type: Spontaneous
  Country: US (occurrence: US)
  Receive Date: 20240216
  Receipt Date: 20240216
  Transmission Date: 20240410
  Serious: No
  Sender: FDA-Public Use
  Company Number: US-PFIZER INC-PV202400021135

PATIENT
  Age: 54 Year
  Sex: Female

DRUGS (1)
  1. IBRANCE [Suspect]
     Active Substance: PALBOCICLIB
     Dosage: TK 1 C PO D FOR 21 DAYS AND 7 DAYS OFF OF A 28 DAY TREATMENT CYCLE
     Route: 048
     Dates: start: 20240119

REACTIONS (1)
  - Fatigue [Unknown]
